FAERS Safety Report 15628431 (Version 1)
Quarter: 2018Q4

REPORT INFORMATION
  Report Type: Report from Study
  Country: US (occurrence: US)
  Receive Date: 20181116
  Receipt Date: 20181116
  Transmission Date: 20190205
  Serious: Yes (Hospitalization, Other)
  Sender: FDA-Public Use
  Company Number: US-SHIRE-US201843412

PATIENT
  Sex: Female

DRUGS (1)
  1. HUMAN NORMAL IMMUNOGLOBULIN; LIQUID [Suspect]
     Active Substance: HUMAN IMMUNOGLOBULIN G
     Indication: IMMUNODEFICIENCY COMMON VARIABLE
     Dosage: UNK
     Route: 058

REACTIONS (24)
  - Visual impairment [Unknown]
  - Oedema [Unknown]
  - Bedridden [Unknown]
  - Vascular injury [Unknown]
  - Hypoacusis [Unknown]
  - Injection site discharge [Unknown]
  - Transient ischaemic attack [Unknown]
  - Meningitis [Unknown]
  - Cough [Unknown]
  - Diabetes mellitus [Unknown]
  - Mastocytosis [Unknown]
  - Oral herpes [Unknown]
  - Fluid retention [Unknown]
  - Dislocation of vertebra [Unknown]
  - Feeling abnormal [Unknown]
  - Pelvic fracture [Unknown]
  - Rib fracture [Unknown]
  - Connective tissue disorder [Unknown]
  - Muscle spasticity [Unknown]
  - Speech disorder [Unknown]
  - Cystitis [Unknown]
  - Herpes zoster [Unknown]
  - Nerve injury [Unknown]
  - Tremor [Unknown]
